FAERS Safety Report 5703299-4 (Version None)
Quarter: 2008Q2

REPORT INFORMATION
  Report Type: 
  Country: None (occurrence: None)
  Receive Date: 20080411
  Receipt Date: 20080402
  Transmission Date: 20081010
  Serious: Yes (Hospitalization, Other)
  Sender: FDA-Public Use
  Company Number: NL-PFIZER INC-2008017375

PATIENT
  Sex: Male
  Weight: 125 kg

DRUGS (6)
  1. LIPITOR [Suspect]
     Route: 048
     Dates: start: 20030101, end: 20080129
  2. IRBESARTAN [Concomitant]
  3. METFORMIN HCL [Concomitant]
  4. GLICLAZIDE [Concomitant]
  5. HYDROCHLOROTHIAZIDE [Concomitant]
  6. NOVORAPID [Concomitant]

REACTIONS (1)
  - MUSCLE ATROPHY [None]
